FAERS Safety Report 14752234 (Version 2)
Quarter: 2018Q2

REPORT INFORMATION
  Report Type: Spontaneous
  Country: ES (occurrence: ES)
  Receive Date: 20180412
  Receipt Date: 20180419
  Transmission Date: 20180711
  Serious: Yes (Life-Threatening, Hospitalization, Disabling, Other)
  Sender: FDA-Public Use
  Company Number: ES-GILEAD-2018-0332267

PATIENT
  Age: 59 Year
  Sex: Female

DRUGS (4)
  1. TELMISARTAN. [Concomitant]
     Active Substance: TELMISARTAN
     Dosage: 80 MG, QD
     Route: 048
  2. EPCLUSA [Suspect]
     Active Substance: SOFOSBUVIR\VELPATASVIR
     Indication: HEPATITIS C
     Dosage: 1 DF, UNK
     Route: 048
     Dates: start: 20180306, end: 20180403
  3. LANTUS [Concomitant]
     Active Substance: INSULIN GLARGINE
     Dosage: EVERY 24 HOURS
     Route: 058
     Dates: start: 201710
  4. INSULIN RAPID [Concomitant]
     Active Substance: INSULIN NOS
     Dosage: EVERY 8 HOURS
     Route: 058
     Dates: start: 201710

REACTIONS (3)
  - Cardiac failure [Recovering/Resolving]
  - Asthenia [Recovering/Resolving]
  - Nausea [Recovering/Resolving]

NARRATIVE: CASE EVENT DATE: 201803
